FAERS Safety Report 6608229-9 (Version None)
Quarter: 2010Q1

REPORT INFORMATION
  Report Type: 
  Country: None (occurrence: None)
  Receive Date: 20100301
  Receipt Date: 20100219
  Transmission Date: 20100710
  Serious: Yes (Death, Other)
  Sender: FDA-Public Use
  Company Number: US-ABBOTT-09P-163-0605163-00

PATIENT
  Sex: Female

DRUGS (2)
  1. SYNTHROID [Suspect]
     Indication: HYPOTHYROIDISM
     Route: 048
     Dates: end: 20090901
  2. ALBUTEROL [Concomitant]
     Indication: BRONCHITIS
     Route: 055

REACTIONS (2)
  - LUNG NEOPLASM [None]
  - LUNG NEOPLASM MALIGNANT [None]
